FAERS Safety Report 12890552 (Version 1)
Quarter: 2016Q4

REPORT INFORMATION
  Report Type: Spontaneous
  Country: US (occurrence: US)
  Receive Date: 20161027
  Receipt Date: 20161027
  Transmission Date: 20170207
  Serious: No
  Sender: FDA-Public Use
  Company Number: US-JAZZ-2016-US-015590

PATIENT
  Sex: Female

DRUGS (15)
  1. FEMRING [Concomitant]
     Active Substance: ESTRADIOL ACETATE
  2. PROGESTERONE. [Concomitant]
     Active Substance: PROGESTERONE
  3. CLONAZEPAM. [Concomitant]
     Active Substance: CLONAZEPAM
  4. XYREM [Suspect]
     Active Substance: SODIUM OXYBATE
     Dosage: 3 G, BID
     Route: 048
     Dates: start: 201107
  5. PROVIGIL [Concomitant]
     Active Substance: MODAFINIL
  6. XYREM [Suspect]
     Active Substance: SODIUM OXYBATE
     Dosage: DOSE ADJUSTMENTS
     Route: 048
     Dates: start: 200801, end: 201107
  7. AMBIEN CR [Concomitant]
     Active Substance: ZOLPIDEM TARTRATE
  8. NEURONTIN [Concomitant]
     Active Substance: GABAPENTIN
  9. SYMBICORT [Concomitant]
     Active Substance: BUDESONIDE\FORMOTEROL FUMARATE DIHYDRATE
  10. BUTRANS [Concomitant]
     Active Substance: BUPRENORPHINE
  11. ZOLPIDEM TARTRATE. [Concomitant]
     Active Substance: ZOLPIDEM TARTRATE
  12. XYREM [Suspect]
     Active Substance: SODIUM OXYBATE
     Indication: NARCOLEPSY
     Dosage: 2.25 G, BID
     Route: 048
     Dates: start: 200712, end: 200801
  13. CRESTOR [Concomitant]
     Active Substance: ROSUVASTATIN CALCIUM
  14. CYMBALTA [Concomitant]
     Active Substance: DULOXETINE HYDROCHLORIDE
  15. PREMARIN [Concomitant]
     Active Substance: ESTROGENS, CONJUGATED

REACTIONS (1)
  - Intentional product use issue [Unknown]
